FAERS Safety Report 7587547 (Version 4)
Quarter: 2018Q2

REPORT INFORMATION
  Report Type: Spontaneous
  Country: JP (occurrence: JP)
  Receive Date: 20100915
  Receipt Date: 20180430
  Transmission Date: 20180711
  Serious: Yes (Death, Other)
  Sender: FDA-Public Use
  Company Number: JP-ROCHE-726666

PATIENT
  Age: 70 Year
  Sex: Female
  Weight: 49 kg

DRUGS (12)
  1. AVASTIN [Suspect]
     Active Substance: BEVACIZUMAB
     Indication: LUNG ADENOCARCINOMA
     Route: 041
     Dates: start: 20100713, end: 20100810
  2. PACLITAXEL. [Suspect]
     Active Substance: PACLITAXEL
     Indication: LUNG ADENOCARCINOMA
     Route: 041
     Dates: start: 20100713, end: 20100810
  3. MAGMITT [Concomitant]
     Active Substance: MAGNESIUM OXIDE
     Route: 048
  4. GOSHA-JINKI-GAN [Concomitant]
     Active Substance: HERBALS
     Route: 048
  5. ONEALFA [Concomitant]
     Active Substance: ALFACALCIDOL
     Indication: OSTEOPOROSIS
     Route: 048
  6. BONALON [Concomitant]
     Active Substance: ALENDRONATE SODIUM
     Indication: OSTEOPOROSIS
     Route: 048
  7. METHYCOBAL [Concomitant]
     Active Substance: METHYLCOBALAMIN
     Route: 048
  8. CARBOPLATIN. [Suspect]
     Active Substance: CARBOPLATIN
     Indication: LUNG ADENOCARCINOMA
     Route: 041
     Dates: start: 20100713, end: 20100810
  9. GASTER [Concomitant]
     Active Substance: FAMOTIDINE
     Indication: ULCER
     Route: 048
  10. HYPEN (JAPAN) [Concomitant]
     Route: 048
  11. DAI-KENCHU-TO [Concomitant]
     Active Substance: MALTOSE
     Route: 048
  12. GASMOTIN [Concomitant]
     Active Substance: MOSAPRIDE CITRATE
     Route: 048

REACTIONS (11)
  - Constipation [Unknown]
  - Hypoaesthesia [Unknown]
  - Alopecia [Unknown]
  - Arthralgia [Unknown]
  - Fibrin D dimer increased [Unknown]
  - Cardiac tamponade [Fatal]
  - Skin tightness [Unknown]
  - Blood pressure increased [Unknown]
  - Aortic dissection [Fatal]
  - Bone marrow failure [Unknown]
  - Emphysema [Unknown]

NARRATIVE: CASE EVENT DATE: 20100908
